FAERS Safety Report 9246001 (Version 2)
Quarter: 2013Q2

REPORT INFORMATION
  Report Type: Spontaneous
  Country: JP (occurrence: JP)
  Receive Date: 20130422
  Receipt Date: 20130506
  Transmission Date: 20140414
  Serious: Yes (Other)
  Sender: FDA-Public Use
  Company Number: PHHY2013JP038651

PATIENT
  Sex: Female

DRUGS (5)
  1. CARBAMAZEPINE [Suspect]
     Indication: EPILEPSY
     Dosage: UNK UKN, UNK
     Route: 048
  2. SODIUM VALPROATE [Concomitant]
     Dosage: UNK UKN, UNK
     Route: 048
  3. PHENYTOIN [Concomitant]
     Dosage: UNK UKN, UNK
  4. PHENOBARBITAL [Concomitant]
     Dosage: UNK UKN, UNK
  5. ZONISAMIDE [Concomitant]
     Dosage: UNK UKN, UNK
     Route: 048

REACTIONS (8)
  - Hemiparesis [Unknown]
  - Myoclonic epilepsy [Unknown]
  - Complex partial seizures [Unknown]
  - Developmental delay [Unknown]
  - Exanthema subitum [Unknown]
  - Status epilepticus [Recovered/Resolved]
  - Pyrexia [Unknown]
  - Ataxia [Unknown]
